FAERS Safety Report 23130025 (Version 1)
Quarter: 2023Q4

REPORT INFORMATION
  Report Type: Spontaneous
  Country: US (occurrence: None)
  Receive Date: 20231030
  Receipt Date: 20231030
  Transmission Date: 20240109
  Serious: Yes (Disabling, Other)
  Sender: FDA-Public Use
  Company Number: None

PATIENT
  Age: 28 Year
  Sex: Female
  Weight: 83.25 kg

DRUGS (13)
  1. TOPIRAMATE [Suspect]
     Active Substance: TOPIRAMATE
     Indication: Migraine
     Dosage: OTHER QUANTITY : 3 TABLET(S);?FREQUENCY : AT BEDTIME;?
     Route: 048
     Dates: start: 20230810, end: 20231011
  2. EFFEXOR XR [Concomitant]
     Active Substance: VENLAFAXINE HYDROCHLORIDE
  3. Montolukast [Concomitant]
  4. Rittalin [Concomitant]
  5. METHOCARBAMOL [Concomitant]
     Active Substance: METHOCARBAMOL
  6. SUMATRIPTAN [Concomitant]
     Active Substance: SUMATRIPTAN
  7. NORETHINDRONE [Concomitant]
     Active Substance: NORETHINDRONE
  8. WIXELA INHUB [Concomitant]
     Active Substance: FLUTICASONE PROPIONATE\SALMETEROL XINAFOATE
  9. PRAZOSIN [Concomitant]
     Active Substance: PRAZOSIN
  10. AZELASTINE [Concomitant]
     Active Substance: AZELASTINE\AZELASTINE HYDROCHLORIDE
  11. CALCIUM [Concomitant]
     Active Substance: CALCIUM
  12. VITAMIN D [Concomitant]
     Active Substance: VITAMIN D NOS
  13. Women^s Multi-vitamin [Concomitant]

REACTIONS (7)
  - Illness [None]
  - Nausea [None]
  - Fatigue [None]
  - Pain in extremity [None]
  - Upper limb fracture [None]
  - Blood creatine increased [None]
  - Blood chloride increased [None]
